FAERS Safety Report 6852720-7 (Version None)
Quarter: 2010Q3

REPORT INFORMATION
  Report Type: 
  Country: None (occurrence: None)
  Receive Date: 20100717
  Receipt Date: 20071120
  Transmission Date: 20110219
  Serious: No
  Sender: FDA-Public Use
  Company Number: US-PFIZER INC-2007100292

PATIENT
  Sex: Female

DRUGS (3)
  1. CHANTIX [Suspect]
     Indication: SMOKING CESSATION THERAPY
     Route: 048
     Dates: start: 20071114, end: 20071116
  2. LEXAPRO [Concomitant]
     Route: 048
  3. VIVELLE [Concomitant]
     Route: 062

REACTIONS (1)
  - NAUSEA [None]
